FAERS Safety Report 11500488 (Version 1)
Quarter: 2015Q3

REPORT INFORMATION
  Report Type: Spontaneous
  Country: US (occurrence: None)
  Receive Date: 20150910
  Receipt Date: 20150910
  Transmission Date: 20151125
  Serious: No
  Sender: FDA-Public Use
  Company Number: 2015-PEL-000559

PATIENT
  Age: 55 Year
  Sex: Male

DRUGS (1)
  1. ISOFLURANE. [Suspect]
     Active Substance: ISOFLURANE
     Indication: ANAESTHESIA
     Route: 055

REACTIONS (4)
  - Tachycardia [None]
  - Hypertension [None]
  - Device damage [None]
  - Respiratory acidosis [None]
